FAERS Safety Report 8322863 (Version 2)
Quarter: 2013Q1

REPORT INFORMATION
  Report Type: Spontaneous
  Country: US (occurrence: None)
  Receive Date: 20111221
  Receipt Date: 20130222
  Transmission Date: 20140127
  Serious: Yes (Other)
  Sender: FDA-Public Use
  Company Number: ACO_28454_2011

PATIENT
  Age: 44 Year
  Sex: Male

DRUGS (7)
  1. AMPYRA [Suspect]
     Indication: PRODUCT USED FOR UNKNOWN INDICATION
     Dates: start: 201110, end: 20111121
  2. LYRICA [Concomitant]
  3. LISINOPRIL (LISINOPRIL) [Concomitant]
  4. RAMIPRIL [Concomitant]
  5. FLEXERIL /00428402/ (CYCLOBENZAPRINE HYDROCHLORIDE) [Concomitant]
  6. TRAMADOL HYDROCHLORIDE [Concomitant]
  7. MULTIVITAMIN /00831701/ (VITAMINS NOS) [Concomitant]

REACTIONS (5)
  - Musculoskeletal stiffness [None]
  - Hypokinesia [None]
  - Dyspnoea [None]
  - Drug ineffective [None]
  - Convulsion [None]
